FAERS Safety Report 21743762 (Version 1)
Quarter: 2022Q4

REPORT INFORMATION
  Report Type: Spontaneous
  Country: CO (occurrence: CO)
  Receive Date: 20221217
  Receipt Date: 20221217
  Transmission Date: 20230113
  Serious: Yes (Hospitalization, Other)
  Sender: FDA-Public Use
  Company Number: CO-MLMSERVICE-20221206-3956481-1

PATIENT
  Age: 43 Year
  Sex: Female

DRUGS (11)
  1. CISATRACURIUM [Suspect]
     Active Substance: CISATRACURIUM
     Indication: Neuromuscular blocking therapy
     Dosage: INITIAL DOSE
  2. HYDROCORTISONE [Suspect]
     Active Substance: HYDROCORTISONE
     Indication: Infection
  3. DEXMEDETOMIDINE HYDROCHLORIDE [Concomitant]
     Active Substance: DEXMEDETOMIDINE HYDROCHLORIDE
     Indication: Sedation
  4. CLARITHROMYCIN [Concomitant]
     Active Substance: CLARITHROMYCIN
     Indication: Infection
  5. MAGNESIUM SULFATE [Concomitant]
     Active Substance: MAGNESIUM SULFATE
     Indication: Infection
  6. PROPOFOL [Concomitant]
     Active Substance: PROPOFOL
     Indication: Sedation
     Dosage: LOADING DOSE
  7. PIPERACILLIN AND TAZOBACTAM [Concomitant]
     Active Substance: PIPERACILLIN SODIUM\TAZOBACTAM SODIUM
     Indication: Infection
  8. MIDAZOLAM [Concomitant]
     Active Substance: MIDAZOLAM
     Indication: Sedation
     Dosage: MAINTENANCE DOSE
  9. MIDAZOLAM [Concomitant]
     Active Substance: MIDAZOLAM
     Indication: Sedation
     Dosage: LOADING DOSE
  10. CISATRACURIUM [Suspect]
     Active Substance: CISATRACURIUM
     Indication: Neuromuscular blocking therapy
     Dosage: MAINTENANCE DOSE OF INTERMITTENT, BOLUS
  11. PROPOFOL [Concomitant]
     Active Substance: PROPOFOL
     Indication: Sedation
     Dosage: MAINTENANCE DOSE

REACTIONS (3)
  - Quadriplegia [Recovered/Resolved]
  - Facial paresis [Recovered/Resolved]
  - Intensive care unit acquired weakness [Recovered/Resolved]
